FAERS Safety Report 17511558 (Version 2)
Quarter: 2020Q1

REPORT INFORMATION
  Report Type: Spontaneous
  Country: US (occurrence: US)
  Receive Date: 20200306
  Receipt Date: 20200309
  Transmission Date: 20200409
  Serious: Yes (Hospitalization, Other)
  Sender: FDA-Public Use
  Company Number: US-SHIRE-US202007757

PATIENT
  Age: 68 Year
  Sex: Female
  Weight: 82.54 kg

DRUGS (8)
  1. HCTZ [Concomitant]
     Active Substance: HYDROCHLOROTHIAZIDE
     Indication: PRODUCT USED FOR UNKNOWN INDICATION
  2. VITAMIN D [COLECALCIFEROL] [Concomitant]
     Active Substance: CHOLECALCIFEROL
     Indication: PRODUCT USED FOR UNKNOWN INDICATION
  3. NATPARA (PARATHYROID HORMONE) [Suspect]
     Active Substance: PARATHYROID HORMONE
     Indication: HYPOPARATHYROIDISM
     Dosage: 100 MICROGRAM, 1X/DAY:QD
     Route: 065
     Dates: start: 201510, end: 201909
  4. TYMLOS [Concomitant]
     Active Substance: ABALOPARATIDE
     Indication: BLOOD CALCIUM DECREASED
  5. FORTEO [Concomitant]
     Active Substance: TERIPARATIDE
     Indication: BLOOD CALCIUM DECREASED
  6. ROCALTROL [Concomitant]
     Active Substance: CALCITRIOL
     Indication: BLOOD CALCIUM DECREASED
  7. CITRACAL [CALCIUM CITRATE] [Concomitant]
     Active Substance: CALCIUM CITRATE
     Indication: BLOOD CALCIUM DECREASED
  8. CALCIUM [Concomitant]
     Active Substance: CALCIUM
     Indication: BLOOD CALCIUM DECREASED

REACTIONS (4)
  - Blood calcium decreased [Unknown]
  - Hypercalciuria [Unknown]
  - Recalled product [Unknown]
  - Seizure [Unknown]

NARRATIVE: CASE EVENT DATE: 201909
